FAERS Safety Report 12795715 (Version 2)
Quarter: 2016Q4

REPORT INFORMATION
  Report Type: Spontaneous
  Country: GB (occurrence: GB)
  Receive Date: 20160929
  Receipt Date: 20161117
  Transmission Date: 20170207
  Serious: Yes (Other)
  Sender: FDA-Public Use
  Company Number: GB-TEVA-697130ACC

PATIENT
  Age: 51 Year
  Sex: Male
  Weight: 95 kg

DRUGS (4)
  1. LANSOPRAZOLE. [Concomitant]
     Active Substance: LANSOPRAZOLE
     Indication: GASTRIC PH DECREASED
     Dosage: 1 DOSAGE FORMS DAILY; EACH EVENING
     Dates: start: 20160909
  2. SIMVASTATIN. [Concomitant]
     Active Substance: SIMVASTATIN
     Dosage: 1 DOSAGE FORMS DAILY; AT NIGHT
     Dates: start: 20140415, end: 20160909
  3. METOCLOPRAMIDE. [Concomitant]
     Active Substance: METOCLOPRAMIDE
     Dosage: EVERY 6-8 HOURS
     Dates: start: 20160909
  4. AMLODIPINE [Suspect]
     Active Substance: AMLODIPINE BESYLATE
     Indication: HYPERTENSION
     Dates: start: 20140430

REACTIONS (1)
  - Headache [Unknown]

NARRATIVE: CASE EVENT DATE: 20160909
